FAERS Safety Report 9899831 (Version 1)
Quarter: 2014Q1

REPORT INFORMATION
  Report Type: Spontaneous
  Country: DE (occurrence: GB)
  Receive Date: 20140214
  Receipt Date: 20140214
  Transmission Date: 20141002
  Serious: Yes (Other)
  Sender: FDA-Public Use
  Company Number: GB-FRI-1000054315

PATIENT
  Age: 76 Year
  Sex: Female
  Weight: 73 kg

DRUGS (6)
  1. MEMANTINE [Suspect]
     Route: 048
     Dates: start: 20131009, end: 20140121
  2. CO-CODAMOL [Concomitant]
     Dates: start: 20131011, end: 20140121
  3. DICLOFENAC SODIUM [Concomitant]
     Dates: start: 20131128, end: 20131129
  4. HYPROMELLOSE [Concomitant]
     Dates: start: 20131011, end: 20140118
  5. LYMECYCLINE [Concomitant]
     Dates: start: 20131009, end: 20140121
  6. MOVELAT [Concomitant]
     Dates: start: 20131224, end: 20140121

REACTIONS (1)
  - Muscle spasms [Recovered/Resolved]
